FAERS Safety Report 5622008-0 (Version None)
Quarter: 2008Q1

REPORT INFORMATION
  Report Type: 
  Country: None (occurrence: None)
  Receive Date: 20080211
  Receipt Date: 20080201
  Transmission Date: 20080703
  Serious: Yes (Other)
  Sender: FDA-Public Use
  Company Number: US-JNJFOC-20080200648

PATIENT
  Age: 58 Year
  Sex: Male
  Weight: 83.92 kg

DRUGS (6)
  1. TYLENOL COLD MULTI-SYMPTOM NIGHTTIME COOL BURST [Suspect]
     Indication: RHINORRHOEA
     Route: 048
  2. TYLENOL COLD MULTI-SYMPTOM NIGHTTIME COOL BURST [Suspect]
     Indication: NASOPHARYNGITIS
     Route: 048
  3. COZAAR [Concomitant]
     Indication: HYPERTENSION
  4. NEXIUM [Concomitant]
     Indication: DYSPEPSIA
  5. ASPIRIN [Concomitant]
  6. TYLENOL (CAPLET) [Concomitant]

REACTIONS (2)
  - HALLUCINATION [None]
  - INSOMNIA [None]
